FAERS Safety Report 4371307-1 (Version None)
Quarter: 2004Q2

REPORT INFORMATION
  Report Type: 
  Country: None (occurrence: None)
  Receive Date: 20040603
  Receipt Date: 20040520
  Transmission Date: 20050107
  Serious: Yes (Other)
  Sender: FDA-Public Use
  Company Number: US-JNJFOC-20040505006

PATIENT
  Age: 12 Year
  Sex: Male
  Weight: 34.7 kg

DRUGS (16)
  1. CISAPRIDE (CISAPRIDE) UNSPECIFIED [Suspect]
     Indication: GASTROOESOPHAGEAL REFLUX DISEASE
     Dosage: 4 MG, 3 IN 1 DAY, ORAL
     Route: 048
     Dates: start: 20030709, end: 20040504
  2. BACLOFEN [Concomitant]
  3. RANITIDINE [Concomitant]
  4. CARBAMAZEPINE [Concomitant]
  5. CHLORAL HYDRATE (CHLORAL HYDRATE) [Concomitant]
  6. DIAZEPAM [Concomitant]
  7. LEUPRON (LEUPRORELIN) [Concomitant]
  8. LORATADINE [Concomitant]
  9. ROBITUSSIN DM (ROBITUSSIN DM) [Concomitant]
  10. ACETAMINOPHEN [Concomitant]
  11. IBUPROFEN [Concomitant]
  12. MAALOX (MAALOX) [Concomitant]
  13. LACRILUBE (LACRI-LUBE) [Concomitant]
  14. PYRILAMINE TANNATE (ALL OTHER THERAPEUTICF PRODUCTS) [Concomitant]
  15. MICONAZOLE NITRATE [Concomitant]
  16. METOCLOPRAMIDE HCL [Concomitant]

REACTIONS (1)
  - ELECTROCARDIOGRAM QT CORRECTED INTERVAL PROLONGED [None]
